FAERS Safety Report 25589818 (Version 2)
Quarter: 2025Q3

REPORT INFORMATION
  Report Type: Spontaneous
  Country: CN (occurrence: CN)
  Receive Date: 20250722
  Receipt Date: 20250903
  Transmission Date: 20251021
  Serious: Yes (Death, Life-Threatening, Other)
  Sender: ROCHE
  Company Number: CN-ROCHE-10000340965

PATIENT
  Age: 54 Year
  Sex: Male

DRUGS (1)
  1. TECENTRIQ [Suspect]
     Active Substance: ATEZOLIZUMAB
     Indication: Hepatocellular carcinoma
     Route: 065

REACTIONS (4)
  - Death [Fatal]
  - Intentional product use issue [Unknown]
  - Haemorrhage [Unknown]
  - Product quality issue [Fatal]
